FAERS Safety Report 9904630 (Version 1)
Quarter: 2014Q1

REPORT INFORMATION
  Report Type: Spontaneous
  Country: IN (occurrence: IN)
  Receive Date: 20140218
  Receipt Date: 20140218
  Transmission Date: 20141002
  Serious: Yes (Death)
  Sender: FDA-Public Use
  Company Number: IN-ASTELLAS-2014US001557

PATIENT
  Age: 36 Year
  Sex: Female

DRUGS (1)
  1. AMBISOME [Suspect]
     Indication: HISTOPLASMOSIS
     Dosage: UNK
     Route: 065

REACTIONS (1)
  - Drug ineffective [Fatal]
